FAERS Safety Report 5699859-X (Version None)
Quarter: 2008Q2

REPORT INFORMATION
  Report Type: 
  Country: None (occurrence: None)
  Receive Date: 20080410
  Receipt Date: 20080408
  Transmission Date: 20081010
  Serious: Yes (Death)
  Sender: FDA-Public Use
  Company Number: US-BOEHRINGER INGELHEIM GMBH, GERMANY-2008-BP-05436RO

PATIENT
  Sex: Male
  Weight: 83 kg

DRUGS (21)
  1. PREDNISONE [Suspect]
     Indication: DIFFUSE LARGE B-CELL LYMPHOMA
     Route: 048
     Dates: start: 20080320
  2. CYCLOPHOSPHAMIDE [Suspect]
     Indication: DIFFUSE LARGE B-CELL LYMPHOMA
     Route: 042
     Dates: start: 20080323
  3. RITUXIMAB [Suspect]
     Indication: DIFFUSE LARGE B-CELL LYMPHOMA
     Route: 042
     Dates: start: 20080320
  4. ENZASTAURIN [Suspect]
     Indication: DIFFUSE LARGE B-CELL LYMPHOMA
     Route: 048
     Dates: start: 20080322, end: 20080322
  5. ENZASTAURIN [Suspect]
     Route: 048
     Dates: start: 20080323
  6. DOXORUBICIN HCL [Suspect]
     Indication: DIFFUSE LARGE B-CELL LYMPHOMA
     Route: 042
     Dates: start: 20080321
  7. VINCRISTINE [Suspect]
     Indication: DIFFUSE LARGE B-CELL LYMPHOMA
     Route: 042
     Dates: start: 20080321
  8. LISINOPRIL [Concomitant]
  9. METOPROLOL TARTRATE [Concomitant]
  10. ZOCOR [Concomitant]
  11. HYDROCHLOROTHIAZIDE [Concomitant]
  12. ALLOPURINOL [Concomitant]
  13. ASPIRIN [Concomitant]
  14. CALCIUM [Concomitant]
  15. MULTI-VITAMIN [Concomitant]
  16. LAC-HYDRIN [Concomitant]
  17. NEULASTA [Concomitant]
     Dates: start: 20080322
  18. CARVEDILOL [Concomitant]
  19. TRIAMCINOLONE [Concomitant]
  20. GLUCOSAMINE [Concomitant]
  21. CEFEPIME [Concomitant]
     Dates: start: 20080331

REACTIONS (3)
  - NEUTROPENIA [None]
  - PNEUMONIA [None]
  - SEPSIS [None]
